FAERS Safety Report 7341554-5 (Version None)
Quarter: 2011Q1

REPORT INFORMATION
  Report Type: 
  Country: None (occurrence: None)
  Receive Date: 20110309
  Receipt Date: 20110225
  Transmission Date: 20110831
  Serious: Yes (Other)
  Sender: FDA-Public Use
  Company Number: GB-GENENTECH-313770

PATIENT
  Sex: Female

DRUGS (7)
  1. MABTHERA [Suspect]
     Indication: CHRONIC LYMPHOCYTIC LEUKAEMIA
     Dosage: UNK
     Route: 042
     Dates: start: 20091101, end: 20100301
  2. CAMPATH [Suspect]
     Indication: CHRONIC LYMPHOCYTIC LEUKAEMIA
     Dosage: UNK
     Route: 042
     Dates: start: 20100701, end: 20101001
  3. CYCLOPHOSPHAMIDE [Concomitant]
     Indication: CHRONIC LYMPHOCYTIC LEUKAEMIA
     Dosage: UNK
     Route: 042
     Dates: start: 20091101, end: 20100201
  4. MABTHERA [Suspect]
     Dosage: UNK
     Route: 042
     Dates: start: 20080601, end: 20081101
  5. FLUDARA [Concomitant]
     Dosage: UNK
     Route: 042
     Dates: start: 20080601, end: 20081101
  6. CYCLOPHOSPHAMIDE [Concomitant]
     Dosage: UNK
     Route: 042
     Dates: start: 20080601, end: 20081101
  7. FLUDARA [Concomitant]
     Indication: CHRONIC LYMPHOCYTIC LEUKAEMIA
     Dosage: UNK
     Route: 042
     Dates: start: 20091101, end: 20100201

REACTIONS (1)
  - PROGRESSIVE MULTIFOCAL LEUKOENCEPHALOPATHY [None]
